FAERS Safety Report 18583427 (Version 1)
Quarter: 2020Q4

REPORT INFORMATION
  Report Type: Spontaneous
  Country: US (occurrence: US)
  Receive Date: 20201206
  Receipt Date: 20201206
  Transmission Date: 20210114
  Serious: No
  Sender: FDA-Public Use
  Company Number: US-SA-2020SA347930

PATIENT

DRUGS (1)
  1. DUPIXENT [Suspect]
     Active Substance: DUPILUMAB
     Indication: DERMATITIS ATOPIC
     Dosage: 300 MG (FREQUENCY: OTHER)
     Route: 058
     Dates: start: 20201011

REACTIONS (7)
  - Pruritus [Unknown]
  - Pruritus [Unknown]
  - Rash erythematous [Unknown]
  - Erythema [Unknown]
  - Drug ineffective [Unknown]
  - Skin burning sensation [Unknown]
  - Skin discharge [Unknown]

NARRATIVE: CASE EVENT DATE: 2020
